FAERS Safety Report 11771433 (Version 2)
Quarter: 2016Q4

REPORT INFORMATION
  Report Type: Report from Study
  Country: PL (occurrence: PL)
  Receive Date: 20151124
  Receipt Date: 20161024
  Transmission Date: 20170206
  Serious: Yes (Other)
  Sender: FDA-Public Use
  Company Number: PL-009507513-1511POL010064

PATIENT

DRUGS (3)
  1. RIBAVIRIN. [Suspect]
     Active Substance: RIBAVIRIN
     Indication: CHRONIC HEPATITIS C
     Dosage: 1000 MG, QD IN PATIENTS WEIGHING {75 KG OR 1200 MG, QD IN PATIENTS WEIGHNING }75 KG
     Route: 048
  2. VIEKIRAX [Suspect]
     Active Substance: OMBITASVIR\PARITAPREVIR\RITONAVIR
     Indication: CHRONIC HEPATITIS C
     Dosage: 25/150/100 MG/DAY
  3. EXVIERA [Suspect]
     Active Substance: DASABUVIR
     Indication: CHRONIC HEPATITIS C
     Dosage: 250 MG, BID

REACTIONS (14)
  - Hyperbilirubinaemia [Unknown]
  - Nausea [Unknown]
  - Fatigue [Unknown]
  - Pruritus [Unknown]
  - Jaundice [Unknown]
  - Headache [Unknown]
  - Oedema peripheral [Unknown]
  - Diarrhoea [Unknown]
  - Adverse event [Unknown]
  - Arthralgia [Unknown]
  - Hepatotoxicity [Unknown]
  - Asthenia [Unknown]
  - Insomnia [Unknown]
  - Rash [Unknown]
